FAERS Safety Report 15284525 (Version 1)
Quarter: 2018Q3

REPORT INFORMATION
  Report Type: Spontaneous
  Country: US (occurrence: US)
  Receive Date: 20180801
  Receipt Date: 20180801
  Transmission Date: 20181010
  Serious: Yes (Other)
  Sender: FDA-Public Use
  Company Number: None

PATIENT
  Age: 64 Year
  Sex: Female
  Weight: 75.15 kg

DRUGS (13)
  1. CAPECITABINE. [Suspect]
     Active Substance: CAPECITABINE
     Indication: RECTAL CANCER
     Route: 048
     Dates: start: 20180522, end: 20180731
  2. CALCIUM + D [Concomitant]
     Active Substance: CALCIUM\VITAMIN D
  3. TORSEMIDE. [Concomitant]
     Active Substance: TORSEMIDE
  4. DOXYCYCLINE. [Concomitant]
     Active Substance: DOXYCYCLINE
  5. FLOVENT [Concomitant]
     Active Substance: FLUTICASONE PROPIONATE
  6. LISINOPRIL. [Concomitant]
     Active Substance: LISINOPRIL
  7. MULTIVITAMINS [Concomitant]
     Active Substance: VITAMINS
  8. HYDROCODONE?APAP [Concomitant]
     Active Substance: ACETAMINOPHEN\HYDROCODONE
  9. VENTOLIN [Concomitant]
     Active Substance: ALBUTEROL SULFATE
  10. BIOTIN [Concomitant]
     Active Substance: BIOTIN
  11. ENOXAPARIN [Concomitant]
     Active Substance: ENOXAPARIN
  12. FERROUS SULFATE. [Concomitant]
     Active Substance: FERROUS SULFATE
  13. TRAZODONE [Concomitant]
     Active Substance: TRAZODONE HYDROCHLORIDE

REACTIONS (3)
  - Dehydration [None]
  - Colitis [None]
  - Diarrhoea [None]
